FAERS Safety Report 8055811-0 (Version None)
Quarter: 2011Q4

REPORT INFORMATION
  Report Type: 
  Country: None (occurrence: None)
  Receive Date: 20111215
  Receipt Date: 20110913
  Transmission Date: 20120403
  Serious: Yes (Disabling)
  Sender: FDA-Public Use
  Company Number: 1045509

PATIENT
  Age: 43 Year
  Sex: Female
  Weight: 68.18 kg

DRUGS (49)
  1. METOCLOPRAMIDE [Suspect]
     Indication: DIABETIC GASTROPARESIS
     Dosage: ORAL
     Route: 048
     Dates: start: 20040621
  2. METOCLOPRAMIDE [Suspect]
     Indication: NAUSEA
     Dosage: ORAL
     Route: 048
     Dates: start: 20040621
  3. METOCLOPRAMIDE [Suspect]
     Indication: DIABETIC GASTROPARESIS
     Dosage: ORAL
     Route: 048
     Dates: start: 20061114, end: 20070816
  4. METOCLOPRAMIDE [Suspect]
     Indication: NAUSEA
     Dosage: ORAL
     Route: 048
     Dates: start: 20061114, end: 20070816
  5. METOCLOPRAMIDE [Suspect]
     Indication: DIABETIC GASTROPARESIS
     Dosage: ORAL
     Route: 048
     Dates: start: 19990901
  6. METOCLOPRAMIDE [Suspect]
     Indication: NAUSEA
     Dosage: ORAL
     Route: 048
     Dates: start: 19990901
  7. METOCLOPRAMIDE [Suspect]
     Indication: DIABETIC GASTROPARESIS
     Dosage: ORAL
     Route: 048
     Dates: start: 20000203
  8. METOCLOPRAMIDE [Suspect]
     Indication: NAUSEA
     Dosage: ORAL
     Route: 048
     Dates: start: 20000203
  9. METOCLOPRAMIDE [Suspect]
     Indication: DIABETIC GASTROPARESIS
     Dosage: ORAL
     Route: 048
     Dates: start: 20000923
  10. METOCLOPRAMIDE [Suspect]
     Indication: NAUSEA
     Dosage: ORAL
     Route: 048
     Dates: start: 20000923
  11. METOCLOPRAMIDE [Suspect]
     Indication: DIABETIC GASTROPARESIS
     Dosage: ORAL
     Route: 048
     Dates: start: 20040621
  12. METOCLOPRAMIDE [Suspect]
     Indication: NAUSEA
     Dosage: ORAL
     Route: 048
     Dates: start: 20040621
  13. METOCLOPRAMIDE [Suspect]
     Indication: DIABETIC GASTROPARESIS
     Dosage: ORAL
     Route: 048
     Dates: start: 20061114, end: 20070816
  14. METOCLOPRAMIDE [Suspect]
     Indication: NAUSEA
     Dosage: ORAL
     Route: 048
     Dates: start: 20061114, end: 20070816
  15. METOCLOPRAMIDE [Suspect]
     Indication: DIABETIC GASTROPARESIS
     Dosage: ORAL
     Route: 048
     Dates: start: 20070822
  16. METOCLOPRAMIDE [Suspect]
     Indication: NAUSEA
     Dosage: ORAL
     Route: 048
     Dates: start: 20070822
  17. METOCLOPRAMIDE [Suspect]
     Indication: DIABETIC GASTROPARESIS
     Dosage: ORAL
     Route: 048
     Dates: start: 20000203
  18. METOCLOPRAMIDE [Suspect]
     Indication: NAUSEA
     Dosage: ORAL
     Route: 048
     Dates: start: 20000203
  19. METOCLOPRAMIDE [Suspect]
     Indication: DIABETIC GASTROPARESIS
     Dosage: ORAL
     Route: 048
     Dates: start: 20000926, end: 20010215
  20. METOCLOPRAMIDE [Suspect]
     Indication: NAUSEA
     Dosage: ORAL
     Route: 048
     Dates: start: 20000926, end: 20010215
  21. METOCLOPRAMIDE [Suspect]
     Indication: DIABETIC GASTROPARESIS
     Dosage: ORAL
     Route: 048
     Dates: start: 20010216
  22. METOCLOPRAMIDE [Suspect]
     Indication: NAUSEA
     Dosage: ORAL
     Route: 048
     Dates: start: 20010216
  23. METOCLOPRAMIDE [Suspect]
     Indication: DIABETIC GASTROPARESIS
     Dosage: ORAL
     Route: 048
     Dates: start: 20030508, end: 20040406
  24. METOCLOPRAMIDE [Suspect]
     Indication: NAUSEA
     Dosage: ORAL
     Route: 048
     Dates: start: 20030508, end: 20040406
  25. METOCLOPRAMIDE [Suspect]
     Indication: DIABETIC GASTROPARESIS
     Dosage: ORAL
     Route: 048
     Dates: start: 20030508, end: 20040406
  26. METOCLOPRAMIDE [Suspect]
     Indication: NAUSEA
     Dosage: ORAL
     Route: 048
     Dates: start: 20030508, end: 20040406
  27. METOCLOPRAMIDE [Suspect]
     Indication: DIABETIC GASTROPARESIS
     Dosage: ORAL
     Route: 048
     Dates: start: 20040407
  28. METOCLOPRAMIDE [Suspect]
     Indication: NAUSEA
     Dosage: ORAL
     Route: 048
     Dates: start: 20040407
  29. METOCLOPRAMIDE [Suspect]
     Indication: DIABETIC GASTROPARESIS
     Dosage: ORAL
     Route: 048
     Dates: start: 20070822
  30. METOCLOPRAMIDE [Suspect]
     Indication: NAUSEA
     Dosage: ORAL
     Route: 048
     Dates: start: 20070822
  31. METOCLOPRAMIDE [Suspect]
     Indication: DIABETIC GASTROPARESIS
     Dosage: ORAL
     Route: 048
     Dates: start: 19990901
  32. METOCLOPRAMIDE [Suspect]
     Indication: NAUSEA
     Dosage: ORAL
     Route: 048
     Dates: start: 19990901
  33. METOCLOPRAMIDE [Suspect]
     Indication: DIABETIC GASTROPARESIS
     Dosage: ORAL
     Route: 048
     Dates: start: 20000923
  34. METOCLOPRAMIDE [Suspect]
     Indication: NAUSEA
     Dosage: ORAL
     Route: 048
     Dates: start: 20000923
  35. METOCLOPRAMIDE [Suspect]
     Indication: DIABETIC GASTROPARESIS
     Dosage: ORAL
     Route: 048
     Dates: start: 20000926, end: 20010215
  36. METOCLOPRAMIDE [Suspect]
     Indication: NAUSEA
     Dosage: ORAL
     Route: 048
     Dates: start: 20000926, end: 20010215
  37. METOCLOPRAMIDE [Suspect]
     Indication: DIABETIC GASTROPARESIS
     Dosage: ORAL
     Route: 048
     Dates: start: 20010216
  38. METOCLOPRAMIDE [Suspect]
     Indication: NAUSEA
     Dosage: ORAL
     Route: 048
     Dates: start: 20010216
  39. METOCLOPRAMIDE [Suspect]
     Indication: DIABETIC GASTROPARESIS
     Dosage: ORAL
     Route: 048
     Dates: start: 20040407
  40. METOCLOPRAMIDE [Suspect]
     Indication: NAUSEA
     Dosage: ORAL
     Route: 048
     Dates: start: 20040407
  41. PROMETHAZINE [Concomitant]
  42. METOCLOPRAMIDE [Suspect]
     Indication: NAUSEA
     Dosage: INTRAVENOUS
     Route: 042
     Dates: start: 20040615, end: 20040616
  43. METOCLOPRAMIDE [Suspect]
     Indication: DIABETIC GASTROPARESIS
     Dosage: INTRAVENOUS
     Route: 042
     Dates: start: 20040615, end: 20040616
  44. METOCLOPRAMIDE [Suspect]
     Indication: NAUSEA
     Dosage: INTRAVENOUS
     Route: 042
     Dates: start: 20070817, end: 20070821
  45. METOCLOPRAMIDE [Suspect]
     Indication: DIABETIC GASTROPARESIS
     Dosage: INTRAVENOUS
     Route: 042
     Dates: start: 20070817, end: 20070821
  46. METOCLOPRAMIDE [Suspect]
     Indication: NAUSEA
     Dosage: INTRAVENOUS
     Route: 042
     Dates: start: 20070817, end: 20070821
  47. METOCLOPRAMIDE [Suspect]
     Indication: DIABETIC GASTROPARESIS
     Dosage: INTRAVENOUS
     Route: 042
     Dates: start: 20070817, end: 20070821
  48. METOCLOPRAMIDE [Suspect]
     Indication: NAUSEA
     Dosage: INTRAVENOUS
     Route: 042
     Dates: start: 20040615, end: 20040616
  49. METOCLOPRAMIDE [Suspect]
     Indication: DIABETIC GASTROPARESIS
     Dosage: INTRAVENOUS
     Route: 042
     Dates: start: 20040615, end: 20040616

REACTIONS (1)
  - TARDIVE DYSKINESIA [None]
